FAERS Safety Report 8457944-3 (Version None)
Quarter: 2012Q2

REPORT INFORMATION
  Report Type: 
  Country: None (occurrence: None)
  Receive Date: 20120622
  Receipt Date: 20120615
  Transmission Date: 20120825
  Serious: Yes (Hospitalization)
  Sender: FDA-Public Use
  Company Number: US-UCBSA-053938

PATIENT
  Age: 66 Year
  Sex: Male
  Weight: 70.2 kg

DRUGS (1)
  1. CIMZIA [Suspect]
     Indication: PSORIATIC ARTHROPATHY
     Dosage: NO OF DOSES RECEIVED: 36.
     Route: 058
     Dates: start: 20101104

REACTIONS (1)
  - DERMAL CYST [None]
